FAERS Safety Report 8801366 (Version 1)
Quarter: 2012Q4

REPORT INFORMATION
  Report Type: 
  Country: FR (occurrence: FR)
  Receive Date: 20120921
  Receipt Date: 20120921
  Transmission Date: 20130627
  Serious: Yes (Other)
  Sender: FDA-Public Use
  Company Number: FR-B.I. PHARMACEUTICALS,INC./RIDGEFIELD-2012-FF-01211FF

PATIENT
  Sex: Male

DRUGS (2)
  1. VIRAMUNE [Suspect]
     Indication: HIV INFECTION CDC CATEGORY A2
     Route: 048
     Dates: start: 20110727, end: 20120515
  2. TRUVADA [Concomitant]
     Route: 048

REACTIONS (1)
  - Cholestasis [Recovered/Resolved]
